FAERS Safety Report 4916838-8 (Version None)
Quarter: 2006Q1

REPORT INFORMATION
  Report Type: 
  Country: None (occurrence: None)
  Receive Date: 20060216
  Receipt Date: 20060216
  Transmission Date: 20060701
  Serious: Yes (Other)
  Sender: FDA-Public Use
  Company Number: None

PATIENT
  Age: 30 Year
  Sex: Female
  Weight: 72.5755 kg

DRUGS (1)
  1. WELLBUTRIBN SR 100 MG [Suspect]
     Indication: SMOKING CESSATION THERAPY
     Dosage: 100 MG ONCE DAILY; 100 MG EVERY OTHER DAY
     Dates: start: 20060205, end: 20060205

REACTIONS (3)
  - DEPRESSION [None]
  - MANIA [None]
  - SUICIDAL IDEATION [None]
